FAERS Safety Report 17301193 (Version 1)
Quarter: 2020Q1

REPORT INFORMATION
  Report Type: Spontaneous
  Country: CH (occurrence: CH)
  Receive Date: 20200122
  Receipt Date: 20200122
  Transmission Date: 20200409
  Serious: Yes (Hospitalization)
  Sender: FDA-Public Use
  Company Number: NVSC2020CH011791

PATIENT
  Age: 81 Year
  Sex: Female
  Weight: 62.4 kg

DRUGS (16)
  1. MABTHERA [Concomitant]
     Active Substance: RITUXIMAB
     Dosage: UNK UKN (653 MG, IN TOTAL)
     Route: 041
     Dates: start: 20191126, end: 20191126
  2. ATORVASTATIN PFIZER [Concomitant]
     Active Substance: ATORVASTATIN
     Indication: PRODUCT USED FOR UNKNOWN INDICATION
     Dosage: 20 MG, QD
     Route: 065
  3. TRIATEC [Concomitant]
     Dosage: 5 MG, Q12H
     Route: 065
     Dates: start: 20191208
  4. MABTHERA [Concomitant]
     Active Substance: RITUXIMAB
     Indication: PRODUCT USED FOR UNKNOWN INDICATION
     Dosage: UNK UKN (653 MG, IN TOTAL) (POLYETHYLEN, NA-BICARBONAT, POLYPROPYLEN, PALONOSTERON, DAFALGAN 1000 MG
     Route: 041
     Dates: start: 20191119, end: 20191119
  5. CYMBALTA [Concomitant]
     Active Substance: DULOXETINE HYDROCHLORIDE
     Dosage: 30 MG, QD
     Route: 065
     Dates: start: 20191208
  6. AMLODIPINE [Concomitant]
     Active Substance: AMLODIPINE BESYLATE
     Indication: PRODUCT USED FOR UNKNOWN INDICATION
     Dosage: 5 MG, QD
     Route: 065
     Dates: start: 20191122
  7. DIFLUCAN [Concomitant]
     Active Substance: FLUCONAZOLE
     Indication: PRODUCT USED FOR UNKNOWN INDICATION
     Dosage: 200 MG, QW
     Route: 065
  8. METHOTREXAT SANDOZ [Suspect]
     Active Substance: METHOTREXATE SODIUM
     Indication: PRODUCT USED FOR UNKNOWN INDICATION
     Dosage: UNK UKN (5225 MG, IN TOTAL)
     Route: 041
     Dates: start: 20191127, end: 20191127
  9. NATULAN [Interacting]
     Active Substance: PROCARBAZINE HYDROCHLORIDE
     Indication: PRODUCT USED FOR UNKNOWN INDICATION
     Dosage: 50 MG, Q12H
     Route: 048
     Dates: start: 20191128, end: 20191130
  10. TRIATEC [Concomitant]
     Indication: PRODUCT USED FOR UNKNOWN INDICATION
     Dosage: 5 MG, Q12H (STARTED GRADUALLY IN A DOSE OF 1.25 MG/ DAY, WITHHELD FROM 30 NOV 2019 TO 07 DEC 2019 (I
     Route: 065
     Dates: start: 20191115, end: 20191129
  11. HEPARIN CALCIUM [Concomitant]
     Active Substance: HEPARIN CALCIUM
     Indication: PRODUCT USED FOR UNKNOWN INDICATION
     Dosage: 1 DF, QD
     Route: 065
     Dates: start: 20191124, end: 20191129
  12. FORTECORTIN [Concomitant]
     Active Substance: DEXAMETHASONE
     Indication: PRODUCT USED FOR UNKNOWN INDICATION
     Dosage: 12 MG, QD
     Route: 065
     Dates: start: 20191109
  13. NOPIL [Concomitant]
     Active Substance: SULFAMETHOXAZOLE\TRIMETHOPRIM
     Indication: PRODUCT USED FOR UNKNOWN INDICATION
     Dosage: 1 DF, BID (SULFAMETHOXAZOLE: 800MG AND TRIMETHOPRIM: 160MG)
     Route: 065
     Dates: start: 20191120
  14. PANTOZOL [Interacting]
     Active Substance: PANTOPRAZOLE SODIUM
     Indication: PRODUCT USED FOR UNKNOWN INDICATION
     Dosage: 40 MG, Q12H
     Route: 065
     Dates: start: 20191106
  15. LASIX [Interacting]
     Active Substance: FUROSEMIDE
     Indication: PRODUCT USED FOR UNKNOWN INDICATION
     Dosage: 1 DF, QD (20 MG ON 27 NOV AND 28 NOV, 80 MG ON 02 DEC, 40 MG ON 03 DEC, 04 DEC, 20 MG ON 05 AND 07 D
     Route: 065
     Dates: start: 20191127, end: 20191207
  16. CYMBALTA [Concomitant]
     Active Substance: DULOXETINE HYDROCHLORIDE
     Indication: PRODUCT USED FOR UNKNOWN INDICATION
     Dosage: 30 MG, QD (WITHHELD FROM 30 NOV 2019 TO 07 DEC 2019 (INCIDENTAL EVENT, CI WITH PROCARBAZINE ADMINIST
     Route: 065
     Dates: end: 20191129

REACTIONS (3)
  - Acute kidney injury [Recovering/Resolving]
  - Drug interaction [Recovering/Resolving]
  - Contraindicated product administered [Recovering/Resolving]

NARRATIVE: CASE EVENT DATE: 20191127
